FAERS Safety Report 8470879-5 (Version None)
Quarter: 2012Q2

REPORT INFORMATION
  Report Type: 
  Country: None (occurrence: None)
  Receive Date: 20120323
  Receipt Date: 20111017
  Transmission Date: 20120825
  Serious: Yes (Hospitalization, Other)
  Sender: FDA-Public Use
  Company Number: 163-21880-11081673

PATIENT
  Age: 63 Year
  Sex: Female

DRUGS (30)
  1. REVLIMID [Suspect]
     Indication: MULTIPLE MYELOMA
     Dosage: 25 MG,1 IN 1 D, PO, 10 MG, DAILY X 21 DAYS, PO
     Route: 048
     Dates: start: 20110420, end: 20110512
  2. REVLIMID [Suspect]
     Indication: MULTIPLE MYELOMA
     Dosage: 25 MG,1 IN 1 D, PO, 10 MG, DAILY X 21 DAYS, PO
     Route: 048
     Dates: start: 20110524, end: 20110809
  3. FENTANYL [Concomitant]
  4. IRON (IRON) [Concomitant]
  5. BACLOFEN [Concomitant]
  6. PEPCID [Concomitant]
  7. GLUCOPHAG (METFORMIN HYDROCHLORIDE) [Concomitant]
  8. DECADRON [Concomitant]
  9. LORTAB [Concomitant]
  10. ZOMETA [Concomitant]
  11. NEULASTA [Concomitant]
  12. ARANESP [Concomitant]
  13. CARAFATE [Concomitant]
  14. NEURONTIN [Concomitant]
  15. IPILIMUMAB (IPILIMUMAB) [Concomitant]
  16. LIPITOR [Concomitant]
  17. MAGNESIUM (MAGNESIUM) [Concomitant]
  18. NEXIUM [Concomitant]
  19. CIPRO [Concomitant]
  20. PACERONE [Concomitant]
  21. PERI-COLACE (PERI-COLACE) [Concomitant]
  22. COUMADIN [Concomitant]
  23. ALUMINUM HYDROXIDE AND MAGNESIUM TRISILICATE [Concomitant]
  24. LASIX [Concomitant]
  25. TRENTAL [Concomitant]
  26. LISINOPRIL [Concomitant]
  27. POTASSIUM CHLORIDE [Concomitant]
  28. SINGULAIR [Concomitant]
  29. TRAMADOL HCL [Concomitant]
  30. PERCOCET [Concomitant]

REACTIONS (5)
  - ANAEMIA [None]
  - HAEMATOCRIT DECREASED [None]
  - MALAISE [None]
  - ASTHENIA [None]
  - PANCYTOPENIA [None]
